FAERS Safety Report 15680318 (Version 1)
Quarter: 2018Q4

REPORT INFORMATION
  Report Type: Spontaneous
  Country: US (occurrence: US)
  Receive Date: 20181202
  Receipt Date: 20181202
  Transmission Date: 20190205
  Serious: Yes (Other)
  Sender: FDA-Public Use
  Company Number: None

PATIENT
  Age: 66 Year
  Sex: Female
  Weight: 81 kg

DRUGS (2)
  1. CIPROFLOAXIN [Suspect]
     Active Substance: CIPROFLOXACIN
     Indication: INFECTION PARASITIC
     Route: 048
  2. CIPROFLOAXIN [Suspect]
     Active Substance: CIPROFLOXACIN
     Indication: GASTRIC DISORDER
     Route: 048

REACTIONS (11)
  - Loss of personal independence in daily activities [None]
  - Suicidal ideation [None]
  - Anxiety [None]
  - Feeling abnormal [None]
  - Fatigue [None]
  - Depression [None]
  - Malaise [None]
  - Emotional poverty [None]
  - Chest pain [None]
  - Fear [None]
  - Pruritus [None]

NARRATIVE: CASE EVENT DATE: 20180801
